FAERS Safety Report 9089321 (Version 3)
Quarter: 2013Q1

REPORT INFORMATION
  Report Type: Spontaneous
  Country: JP (occurrence: JP)
  Receive Date: 20130201
  Receipt Date: 20130308
  Transmission Date: 20140127
  Serious: Yes (Death, Hospitalization)
  Sender: FDA-Public Use
  Company Number: JP-B.I. PHARMACEUTICALS,INC./RIDGEFIELD-2013-BI-02159NB

PATIENT
  Age: 70 None
  Sex: Male
  Weight: 42 kg

DRUGS (9)
  1. PRADAXA [Suspect]
     Indication: ATRIAL FIBRILLATION
     Dosage: 220 MG
     Route: 048
     Dates: start: 20110811, end: 20130124
  2. MICARDIS [Concomitant]
     Indication: HYPERTENSION
     Dosage: 40 MG
     Route: 048
     Dates: start: 20100726, end: 20130124
  3. CONIEL [Concomitant]
     Indication: HYPERTENSION
     Dosage: 4 MG
     Route: 048
     Dates: start: 20130117, end: 20130124
  4. HALFDIGOXIN [Concomitant]
     Indication: TACHYCARDIA
     Dosage: 0.125 MG
     Route: 048
     Dates: start: 20111110, end: 20130124
  5. FEBURIC [Concomitant]
     Indication: HYPERURICAEMIA
     Dosage: 10 MG
     Route: 048
     Dates: start: 20120621, end: 20130124
  6. PARIET [Concomitant]
     Indication: GASTROOESOPHAGEAL REFLUX DISEASE
     Dosage: 10 MG
     Route: 048
     Dates: start: 20110905, end: 20130124
  7. GASMOTIN [Concomitant]
     Indication: GASTRITIS
     Dosage: 15 MG
     Route: 048
     Dates: start: 20100730, end: 20130124
  8. PROMAC [Concomitant]
     Indication: GASTRIC ULCER
     Dosage: 150 MG
     Route: 048
     Dates: start: 20100730, end: 20130114
  9. GASTROM [Concomitant]
     Indication: GASTRIC ULCER
     Dosage: 3 G
     Route: 048
     Dates: start: 20100730, end: 20130114

REACTIONS (3)
  - Pulmonary haemorrhage [Fatal]
  - Respiratory failure [Fatal]
  - Pneumothorax spontaneous [Unknown]
